FAERS Safety Report 10447362 (Version 1)
Quarter: 2014Q3

REPORT INFORMATION
  Report Type: Spontaneous
  Country: US (occurrence: US)
  Receive Date: 20140911
  Receipt Date: 20140911
  Transmission Date: 20150326
  Serious: No
  Sender: FDA-Public Use
  Company Number: US-BEH-2013036539

PATIENT
  Age: 70 Year
  Sex: Male

DRUGS (1)
  1. ZEMAIRA [Suspect]
     Active Substance: .ALPHA.1-PROTEINASE INHIBITOR HUMAN
     Dosage: ??-???-2013
     Route: 042

REACTIONS (1)
  - Feeling hot [Unknown]

NARRATIVE: CASE EVENT DATE: 2013
